FAERS Safety Report 4673157-5 (Version None)
Quarter: 2005Q2

REPORT INFORMATION
  Report Type: 
  Country: None (occurrence: None)
  Receive Date: 20050523
  Receipt Date: 20050523
  Transmission Date: 20051028
  Serious: Yes (Other)
  Sender: FDA-Public Use
  Company Number: None

PATIENT
  Age: 78 Year
  Sex: Male
  Weight: 91.2 kg

DRUGS (3)
  1. NIACIN [Suspect]
  2. ADALAT CC [Concomitant]
  3. COLESTIPOL HCL [Concomitant]

REACTIONS (1)
  - MYALGIA [None]
